FAERS Safety Report 21197866 (Version 6)
Quarter: 2024Q2

REPORT INFORMATION
  Report Type: Report from Study
  Country: CA (occurrence: CA)
  Receive Date: 20220810
  Receipt Date: 20240514
  Transmission Date: 20240716
  Serious: Yes (Hospitalization, Other)
  Sender: FDA-Public Use
  Company Number: CA-VER-202200231

PATIENT
  Age: 77 Year
  Sex: Male

DRUGS (11)
  1. TRIPTORELIN PAMOATE [Suspect]
     Active Substance: TRIPTORELIN PAMOATE
     Indication: Prostate cancer
     Dosage: 11.25 MILLIGRAM, ONCE/ 3 MONTHS, POWDER FOR PROLONGED-RELEASE SUSPENSION FOR INJECT.
     Route: 030
     Dates: start: 20220725, end: 20220725
  2. TRIPTORELIN PAMOATE [Suspect]
     Active Substance: TRIPTORELIN PAMOATE
     Indication: Prostate cancer
     Dosage: 11.25 MILLIGRAM, ONCE/ 3 MONTHS, POWDER FOR PROLONGED-RELEASE SUSPENSION FOR INJECT.
     Route: 030
     Dates: start: 20221026, end: 20221026
  3. TRIPTORELIN PAMOATE [Suspect]
     Active Substance: TRIPTORELIN PAMOATE
     Indication: Prostate cancer
     Dosage: 11.25 MILLIGRAM, ONCE/ 3 MONTHS, POWDER FOR PROLONGED-RELEASE SUSPENSION FOR INJECT.
     Route: 030
     Dates: start: 20230125, end: 20230125
  4. TRIPTORELIN PAMOATE [Suspect]
     Active Substance: TRIPTORELIN PAMOATE
     Indication: Prostate cancer
     Dosage: 11.25 MILLIGRAM, ONCE/ 3 MONTHS, POWDER FOR PROLONGED-RELEASE SUSPENSION FOR INJECT.
     Route: 030
     Dates: start: 20230425, end: 20230425
  5. TRIPTORELIN PAMOATE [Suspect]
     Active Substance: TRIPTORELIN PAMOATE
     Indication: Prostate cancer
     Dosage: 11.25 MILLIGRAM, ONCE/ 3 MONTHS, POWDER FOR PROLONGED-RELEASE SUSPENSION FOR INJECT.
     Route: 030
     Dates: start: 20230725, end: 20230725
  6. TRIPTORELIN PAMOATE [Suspect]
     Active Substance: TRIPTORELIN PAMOATE
     Indication: Prostate cancer
     Dosage: 11.25 MILLIGRAM, ONCE/ 3 MONTHS, POWDER FOR PROLONGED-RELEASE SUSPENSION FOR INJECT.
     Route: 030
     Dates: start: 20231024, end: 20231024
  7. TRIPTORELIN PAMOATE [Suspect]
     Active Substance: TRIPTORELIN PAMOATE
     Indication: Prostate cancer
     Dosage: 11.25 MILLIGRAM, ONCE/ 3 MONTHS, POWDER FOR PROLONGED-RELEASE SUSPENSION FOR INJECT.
     Route: 030
     Dates: start: 20240124, end: 20240124
  8. TRIPTORELIN PAMOATE [Suspect]
     Active Substance: TRIPTORELIN PAMOATE
     Indication: Prostate cancer
     Dosage: POWDER FOR PROLONGED-RELEASE SUSPENSION FOR INJECT, 11.25 MILLIGRAM, ONCE/ 3 MONTHS
     Route: 030
     Dates: start: 20220110, end: 20220110
  9. TRIPTORELIN PAMOATE [Suspect]
     Active Substance: TRIPTORELIN PAMOATE
     Indication: Prostate cancer
     Dosage: POWDER FOR PROLONGED-RELEASE SUSPENSION FOR INJECT, 11.25 MILLIGRAM, ONCE/ 3 MONTHS
     Route: 030
     Dates: start: 20220418, end: 20220418
  10. TRIPTORELIN PAMOATE [Suspect]
     Active Substance: TRIPTORELIN PAMOATE
     Indication: Prostate cancer
     Dosage: POWDER FOR PROLONGED-RELEASE SUSPENSION FOR INJECT, 11.25 MILLIGRAM, ONCE/ 3 MONTHS
     Route: 030
     Dates: start: 20240424, end: 20240424
  11. UNSPECIFIED INGREDIENT [Concomitant]
     Active Substance: UNSPECIFIED INGREDIENT
     Indication: Product used for unknown indication
     Route: 065
     Dates: start: 2022, end: 20220728

REACTIONS (12)
  - Post procedural drainage [Unknown]
  - Acute pulmonary oedema [Recovered/Resolved]
  - Device related infection [Recovered/Resolved]
  - Stent placement [Recovered/Resolved]
  - Device occlusion [Recovered/Resolved]
  - Blood pressure systolic increased [Unknown]
  - Ill-defined disorder [Unknown]
  - Hot flush [Unknown]
  - Kidney infection [Recovered/Resolved]
  - Drug dose omission by device [Unknown]
  - Pneumonia [Recovered/Resolved]
  - Inappropriate schedule of product administration [Recovered/Resolved]

NARRATIVE: CASE EVENT DATE: 20220619
